FAERS Safety Report 9112010 (Version 1)
Quarter: 2013Q1

REPORT INFORMATION
  Report Type: Spontaneous
  Country: US (occurrence: US)
  Receive Date: 20130219
  Receipt Date: 20130219
  Transmission Date: 20140127
  Serious: No
  Sender: FDA-Public Use
  Company Number: US-BRISTOL-MYERS SQUIBB COMPANY-16673154

PATIENT
  Age: 58 Year
  Sex: Female
  Weight: 102.49 kg

DRUGS (1)
  1. ORENCIA [Suspect]
     Indication: RHEUMATOID ARTHRITIS
     Dosage: STARTEDLAST MAR2011 OR MAY2011,LAST INFUSION WAS IN SEP 2011 OR OCT2011?SQ:08JUN2012
     Route: 058
     Dates: start: 201103

REACTIONS (1)
  - Influenza [Unknown]
